FAERS Safety Report 8821648 (Version 1)
Quarter: 2012Q4

REPORT INFORMATION
  Report Type: 
  Country: US (occurrence: US)
  Receive Date: 20121002
  Receipt Date: 20121002
  Transmission Date: 20130627
  Serious: No
  Sender: FDA-Public Use
  Company Number: US-VERTEX PHARMACEUTICAL INC.-2012-020654

PATIENT
  Age: 59 Year
  Sex: Female

DRUGS (4)
  1. VX-950 [Suspect]
     Indication: HEPATITIS C
     Dosage: UNK
     Route: 048
     Dates: start: 20120529, end: 201208
  2. RIBAPAK [Concomitant]
     Indication: HEPATITIS C
     Dosage: UNK
     Dates: start: 20120529, end: 201208
  3. PEGASYS [Concomitant]
     Indication: HEPATITIS C
     Dosage: UNK
     Dates: start: 20120529, end: 201208
  4. PROCRIT                            /00909301/ [Concomitant]
     Dosage: UNK
     Dates: start: 20120806

REACTIONS (3)
  - Swelling [Unknown]
  - Feeling cold [Unknown]
  - Rash [Unknown]
